FAERS Safety Report 7949927-4 (Version None)
Quarter: 2011Q4

REPORT INFORMATION
  Report Type: 
  Country: None (occurrence: None)
  Receive Date: 20111130
  Receipt Date: 20111121
  Transmission Date: 20120403
  Serious: Yes (Other)
  Sender: FDA-Public Use
  Company Number: JP-CEPHALON-2011002479

PATIENT
  Sex: Male
  Weight: 65 kg

DRUGS (8)
  1. SULFAMETHOXAZOLE AND TRIMETHOPRIM [Concomitant]
     Dates: start: 20110419, end: 20110430
  2. BENDAMUSTINE HCL [Suspect]
     Indication: B-CELL LYMPHOMA
     Route: 042
     Dates: start: 20110419, end: 20110420
  3. REBAMIPIDE [Suspect]
     Indication: PYREXIA
     Route: 048
     Dates: start: 20110428, end: 20110428
  4. ACYCLOVIR [Concomitant]
     Dates: start: 20110419
  5. CLARITHROMYCIN [Suspect]
     Indication: NASOPHARYNGITIS
     Route: 048
     Dates: end: 20110428
  6. BENDAMUSTINE HCL [Suspect]
     Route: 042
     Dates: start: 20110623, end: 20110624
  7. BENDAMUSTINE HCL [Suspect]
     Route: 042
     Dates: start: 20110602, end: 20110603
  8. ACETAMINOPHEN [Suspect]
     Indication: ANTIPYRESIS
     Route: 048
     Dates: start: 20110425, end: 20110428

REACTIONS (5)
  - WHITE BLOOD CELL COUNT DECREASED [None]
  - PNEUMOCYSTIS JIROVECI PNEUMONIA [None]
  - NEUTROPENIA [None]
  - TOXIC SKIN ERUPTION [None]
  - PYREXIA [None]
